FAERS Safety Report 5939252-5 (Version None)
Quarter: 2008Q4

REPORT INFORMATION
  Report Type: 
  Country: None (occurrence: None)
  Receive Date: 20081103
  Receipt Date: 20081024
  Transmission Date: 20090506
  Serious: Yes (Other)
  Sender: FDA-Public Use
  Company Number: US-JNJCH-2008053075

PATIENT
  Age: 83 Year
  Sex: Male
  Weight: 73 kg

DRUGS (2)
  1. BENADRYL [Suspect]
     Indication: HYPERSENSITIVITY
     Dosage: TEXT:1 EVERY 6 HOURS
     Route: 048
     Dates: start: 20081017, end: 20081019
  2. ANTIHYPERTENSIVES [Concomitant]
     Indication: HYPERTENSION
     Dosage: TEXT:UNSPECIFIED
     Route: 065

REACTIONS (1)
  - VISION BLURRED [None]
